FAERS Safety Report 8925645 (Version 1)
Quarter: 2012Q4

REPORT INFORMATION
  Report Type: 
  Country: JP (occurrence: JP)
  Receive Date: 20121126
  Receipt Date: 20121126
  Transmission Date: 20130627
  Serious: Yes (Hospitalization)
  Sender: FDA-Public Use
  Company Number: JP-ELI_LILLY_AND_COMPANY-JP201210007124

PATIENT
  Age: 50 Year
  Sex: Male

DRUGS (4)
  1. ZYPREXA [Suspect]
     Indication: SCHIZOPHRENIA
     Dosage: UNK
     Route: 048
     Dates: start: 201209, end: 201209
  2. ZYPREXA [Suspect]
     Dosage: 20 mg, qd
     Route: 048
     Dates: start: 201209, end: 20121021
  3. ZYPREXA [Suspect]
     Dosage: UNK
     Route: 048
     Dates: end: 20121104
  4. WYPAX [Concomitant]
     Route: 048

REACTIONS (1)
  - Water intoxication [Recovered/Resolved]
